FAERS Safety Report 4575715-5 (Version None)
Quarter: 2005Q1

REPORT INFORMATION
  Report Type: 
  Country: None (occurrence: None)
  Receive Date: 20050209
  Receipt Date: 20050201
  Transmission Date: 20050727
  Serious: Yes (Hospitalization)
  Sender: FDA-Public Use
  Company Number: US-JNJFOC-20050200948

PATIENT
  Sex: Male

DRUGS (3)
  1. IBUPROFEN [Suspect]
     Route: 049
  2. IBUPROFEN [Suspect]
     Indication: HEADACHE
     Dosage: 1600 MG TID TO QID ONCE PER WEEK FOR 6-7 MONTHS
     Route: 049
  3. ASPIRIN [Concomitant]
     Route: 049

REACTIONS (1)
  - CORONARY ARTERY OCCLUSION [None]
